FAERS Safety Report 11236098 (Version 1)
Quarter: 2015Q3

REPORT INFORMATION
  Report Type: Spontaneous
  Country: JP (occurrence: JP)
  Receive Date: 20150702
  Receipt Date: 20150702
  Transmission Date: 20151125
  Serious: Yes (Other)
  Sender: FDA-Public Use
  Company Number: JP-BAXTER-2015BAX035554

PATIENT
  Age: 7 Year
  Sex: Female

DRUGS (9)
  1. FLOMOXEF SODIUM [Suspect]
     Active Substance: FLOMOXEF SODIUM
     Indication: SEPSIS
     Route: 042
     Dates: start: 20081123, end: 20081127
  2. D-MANNITOL [Suspect]
     Active Substance: MANNITOL
     Indication: PROPHYLAXIS
     Route: 042
     Dates: start: 20081121, end: 20081121
  3. CELLTOP_ETOPOSIDE 20.00 MG/ML_SOLUTION FOR INJECTION_VIAL, GLASS [Suspect]
     Active Substance: ETOPOSIDE
     Indication: INTRACRANIAL GERM CELL TUMOUR
     Route: 042
     Dates: start: 20081121, end: 20081123
  4. BLEOMYCIN [Suspect]
     Active Substance: BLEOMYCIN SULFATE
     Indication: INTRACRANIAL GERM CELL TUMOUR
     Route: 042
     Dates: start: 20081123, end: 20081123
  5. ENDOXAN 1G [Suspect]
     Active Substance: CYCLOPHOSPHAMIDE
     Indication: INTRACRANIAL GERM CELL TUMOUR
     Route: 042
     Dates: start: 20081122, end: 20081123
  6. UROMITEXAN 400 MG [Suspect]
     Active Substance: MESNA
     Indication: PROPHYLAXIS
     Route: 042
     Dates: start: 20081122, end: 20081123
  7. RANDA [Suspect]
     Active Substance: CISPLATIN
     Indication: INTRACRANIAL GERM CELL TUMOUR
     Route: 042
     Dates: start: 20081121
  8. KYTRIL [Suspect]
     Active Substance: GRANISETRON HYDROCHLORIDE
     Indication: GASTROINTESTINAL DISORDER
     Route: 042
     Dates: start: 20081121, end: 20081125
  9. PITRESSIN [Suspect]
     Active Substance: VASOPRESSIN
     Indication: DIABETES INSIPIDUS
     Dosage: 10 UNITS PER DAY FOR 3 DAYS
     Route: 042
     Dates: start: 20081120, end: 20081123

REACTIONS (5)
  - Pyrexia [Recovered/Resolved]
  - Bone marrow failure [Unknown]
  - Liver disorder [Unknown]
  - Renal disorder [Unknown]
  - Thrombotic microangiopathy [Recovering/Resolving]

NARRATIVE: CASE EVENT DATE: 20081123
